FAERS Safety Report 8732557 (Version 2)
Quarter: 2015Q2

REPORT INFORMATION
  Report Type: Report from Study
  Country: US (occurrence: US)
  Receive Date: 20120820
  Receipt Date: 20150624
  Transmission Date: 20150821
  Serious: Yes (Hospitalization)
  Sender: FDA-Public Use
  Company Number: US-ROCHE-1101560

PATIENT
  Age: 57 Year
  Sex: Male

DRUGS (6)
  1. TENORMIN [Concomitant]
     Active Substance: ATENOLOL
     Route: 065
  2. ACTIVASE [Suspect]
     Active Substance: ALTEPLASE
     Indication: ACUTE MYOCARDIAL INFARCTION
     Route: 042
  3. TRIDIL [Concomitant]
     Active Substance: NITROGLYCERIN
     Route: 065
  4. ASPIRIN. [Concomitant]
     Active Substance: ASPIRIN
     Route: 065
  5. PERI-COLACE (UNITED STATES) [Concomitant]
     Route: 065
  6. ISORDIL [Concomitant]
     Active Substance: ISOSORBIDE DINITRATE
     Route: 065

REACTIONS (4)
  - Ventricular tachycardia [Unknown]
  - Ventricular hypokinesia [Unknown]
  - Blood pressure increased [Unknown]
  - Mitral valve incompetence [Unknown]
